FAERS Safety Report 8246259-4 (Version None)
Quarter: 2012Q1

REPORT INFORMATION
  Report Type: 
  Country: None (occurrence: None)
  Receive Date: 20120330
  Receipt Date: 20120322
  Transmission Date: 20120608
  Serious: Yes (Hospitalization)
  Sender: FDA-Public Use
  Company Number: US-BAYER-2011-042555

PATIENT
  Age: 39 Year
  Sex: Female
  Weight: 99.773 kg

DRUGS (8)
  1. YAZ [Suspect]
     Indication: ACNE
     Dosage: UNK
     Dates: start: 20090101
  2. YAZ [Suspect]
  3. TOPIRAMATE [Concomitant]
     Dosage: UNK
     Dates: start: 20090409, end: 20100127
  4. ESTROVEN [Concomitant]
     Dosage: 1 X DAY
  5. LITHIUM CARBONATE [Concomitant]
     Dosage: UNK
     Dates: start: 20081103, end: 20090402
  6. ACIPHEX [Concomitant]
     Dosage: UNK
     Dates: start: 20090526
  7. FLUOXETINE [Concomitant]
     Dosage: UNK
     Dates: start: 20081103, end: 20100127
  8. YAZ [Suspect]
     Indication: PREMENSTRUAL SYNDROME

REACTIONS (9)
  - PANCREATOLITHIASIS [None]
  - PANCREATITIS [None]
  - PAIN [None]
  - CHOLELITHIASIS [None]
  - CHOLECYSTITIS ACUTE [None]
  - ABDOMINAL PAIN [None]
  - CHOLECYSTITIS CHRONIC [None]
  - BILE DUCT STONE [None]
  - VOMITING [None]
